FAERS Safety Report 4456695-X (Version None)
Quarter: 2004Q3

REPORT INFORMATION
  Report Type: 
  Country: None (occurrence: None)
  Receive Date: 20040921
  Receipt Date: 20040908
  Transmission Date: 20050211
  Serious: Yes (Hospitalization)
  Sender: FDA-Public Use
  Company Number: 2004064703

PATIENT
  Age: 62 Year
  Sex: Male

DRUGS (10)
  1. LIPITOR [Suspect]
     Indication: LIPIDS ABNORMAL
     Dosage: 80 MG (80 MG, 1 IN 1 D), ORAL
     Route: 048
     Dates: start: 20040319, end: 20040330
  2. CIPROFLOXACIN [Concomitant]
  3. METOPROLOL SUCCINATE [Concomitant]
  4. DIXYRAZINE (DIXYRAZINE) [Concomitant]
  5. DIGOXIN [Concomitant]
  6. FUROSEMIDE [Concomitant]
  7. PREDNISOLONE [Concomitant]
  8. ASPIRIN [Concomitant]
  9. NICOTINE [Concomitant]
  10. ZOPICLONE (ZOPICLONE) [Concomitant]

REACTIONS (5)
  - ASTHENIA [None]
  - CARDIOVASCULAR DISORDER [None]
  - HAEMOGLOBIN DECREASED [None]
  - PNEUMONIA [None]
  - RHABDOMYOLYSIS [None]
